FAERS Safety Report 6900080-5 (Version None)
Quarter: 2010Q3

REPORT INFORMATION
  Report Type: 
  Country: None (occurrence: None)
  Receive Date: 20100708
  Receipt Date: 20100327
  Transmission Date: 20110219
  Serious: Yes (Other)
  Sender: FDA-Public Use
  Company Number: 2010037363

PATIENT
  Age: 53 Year
  Sex: Female
  Weight: 79 kg

DRUGS (2)
  1. CHANTIX [Suspect]
     Indication: SMOKING CESSATION THERAPY
     Dosage: 0.5 MG, 1X/DAY; 1 MG, 2X/DAY
     Dates: start: 20100308, end: 20100301
  2. CHANTIX [Suspect]
     Indication: SMOKING CESSATION THERAPY
     Dosage: 0.5 MG, 1X/DAY; 1 MG, 2X/DAY
     Dates: start: 20100301, end: 20100327

REACTIONS (6)
  - ABDOMINAL DISCOMFORT [None]
  - HYPERSENSITIVITY [None]
  - NAUSEA [None]
  - SWOLLEN TONGUE [None]
  - THROAT TIGHTNESS [None]
  - VOMITING [None]
